FAERS Safety Report 4481881-2 (Version None)
Quarter: 2004Q4

REPORT INFORMATION
  Report Type: 
  Country: None (occurrence: None)
  Receive Date: 20041020
  Receipt Date: 20041004
  Transmission Date: 20050328
  Serious: Yes (Hospitalization)
  Sender: FDA-Public Use
  Company Number: 238132

PATIENT
  Age: 66 Year
  Sex: Male

DRUGS (16)
  1. NOVORAPID (INSULIN ASPART) SOLUTION FOR INJECTION, 100U/ML [Suspect]
     Indication: DIABETES MELLITUS INSULIN-DEPENDENT
     Dates: start: 20040602
  2. POTASSIUM PERCHLORATE (POTASSIUM PERCHLORATE) [Concomitant]
  3. CALCIPARINE [Concomitant]
  4. AUGMENTIN '125' [Concomitant]
  5. NEO-MERCAZOLE TAB [Concomitant]
  6. ADANCOR (NICORANDIL) [Concomitant]
  7. PRAVASTATIN [Concomitant]
  8. BISOPROLOL FUMARATE [Concomitant]
  9. POTASSIUM CHLORIDE [Concomitant]
  10. LASIX [Concomitant]
  11. KARDEGIC /FRA/ (ACETYLSALICYLATE LYSINE) [Concomitant]
  12. RABEPRAZOLE SODIUM [Concomitant]
  13. AMAREL [Concomitant]
  14. CORDARONE [Concomitant]
  15. LANTUS [Concomitant]
  16. GLUCOR (ACARBOSE) [Concomitant]

REACTIONS (7)
  - BLISTER [None]
  - DERMATITIS [None]
  - DYSHIDROSIS [None]
  - ECZEMA [None]
  - ERYTHEMA [None]
  - PRURITUS [None]
  - SKIN DESQUAMATION [None]
